FAERS Safety Report 8358569-0 (Version None)
Quarter: 2012Q2

REPORT INFORMATION
  Report Type: 
  Country: None (occurrence: None)
  Receive Date: 20120514
  Receipt Date: 20120508
  Transmission Date: 20120825
  Serious: Yes (Other)
  Sender: FDA-Public Use
  Company Number: US-PFIZER INC-2012112508

PATIENT
  Sex: Female
  Weight: 53.061 kg

DRUGS (13)
  1. POTASSIUM [Concomitant]
     Dosage: 10 MEQ, 3X/DAY
  2. NEURONTIN [Concomitant]
     Dosage: 300 MG, 3X/DAY
  3. VITAMIN D [Concomitant]
     Dosage: 50000 UNITS, WEEKLY
  4. SINGULAIR [Concomitant]
     Dosage: 10 MG, 1X/DAY
  5. SODIUM CHLORIDE [Concomitant]
     Dosage: UNK
  6. SPIRONOLACTONE [Concomitant]
     Dosage: 25 MG, 1X/DAY
  7. LIDOCAINE [Concomitant]
     Indication: NEUROPATHY PERIPHERAL
     Dosage: UNK
  8. OXYGEN [Concomitant]
     Dosage: 5 L, 1X/DAY
  9. ADVAIR DISKUS 100/50 [Concomitant]
     Dosage: UNK, 1X/DAY
  10. SYMBICORT [Concomitant]
     Dosage: TWO PUFFS, AS NEEDED
  11. REVATIO [Suspect]
     Indication: PULMONARY HYPERTENSION
     Dosage: 20 MG, 3X/DAY
     Route: 048
  12. NORVASC [Concomitant]
     Dosage: 5 MG, 1X/DAY
  13. FLOLAN [Concomitant]
     Dosage: UNK
     Dates: end: 20120501

REACTIONS (3)
  - SPINAL COMPRESSION FRACTURE [None]
  - LUNG DISORDER [None]
  - BACK PAIN [None]
